FAERS Safety Report 15691960 (Version 5)
Quarter: 2022Q1

REPORT INFORMATION
  Report Type: Spontaneous
  Country: CA (occurrence: CA)
  Receive Date: 20181205
  Receipt Date: 20220117
  Transmission Date: 20220423
  Serious: Yes (Life-Threatening)
  Sender: FDA-Public Use
  Company Number: CA-BAUSCH-BL-2018-034022

PATIENT
  Age: 44 Year
  Sex: Female

DRUGS (24)
  1. NORITATE [Suspect]
     Active Substance: METRONIDAZOLE
     Indication: Hidradenitis
     Route: 061
  2. NORITATE [Suspect]
     Active Substance: METRONIDAZOLE
     Dosage: DOSAGE WAS CHANGED TO DOSAGE UNKNOWN
     Route: 065
  3. CLINDAMYCIN PHOSPHATE [Suspect]
     Active Substance: CLINDAMYCIN PHOSPHATE
     Indication: Hidradenitis
     Route: 061
  4. CLINDAMYCIN PHOSPHATE [Suspect]
     Active Substance: CLINDAMYCIN PHOSPHATE
     Dosage: TOPICAL DOSAGE WAS CHANGED TO DOSAGE UNKNOWN
     Route: 065
  5. RIFAMPIN [Suspect]
     Active Substance: RIFAMPIN
     Indication: Hidradenitis
     Route: 065
  6. MINOCYCLINE HYDROCHLORIDE [Suspect]
     Active Substance: MINOCYCLINE HYDROCHLORIDE
     Indication: Hidradenitis
     Route: 065
  7. ACZONE [Suspect]
     Active Substance: DAPSONE
     Indication: Hidradenitis
     Route: 061
  8. ACZONE [Suspect]
     Active Substance: DAPSONE
     Route: 065
  9. DAPSONE [Suspect]
     Active Substance: DAPSONE
     Indication: Hidradenitis
     Route: 065
  10. TRIAMCINOLONE ACETONIDE [Suspect]
     Active Substance: TRIAMCINOLONE ACETONIDE
     Indication: Hidradenitis
     Route: 065
  11. METRONIDAZOLE [Suspect]
     Active Substance: METRONIDAZOLE
     Indication: Hidradenitis
     Route: 065
  12. ERTAPENEM [Suspect]
     Active Substance: ERTAPENEM
     Indication: Hidradenitis
     Route: 042
  13. MOXIFLOXACIN [Suspect]
     Active Substance: MOXIFLOXACIN
     Indication: Hidradenitis
     Route: 065
  14. AMOXICILLIN\CLAVULANATE POTASSIUM [Suspect]
     Active Substance: AMOXICILLIN\CLAVULANATE POTASSIUM
     Indication: Hidradenitis
     Route: 065
  15. ISOTRETINOIN [Suspect]
     Active Substance: ISOTRETINOIN
     Indication: Hidradenitis
     Route: 065
  16. PREDNISONE [Suspect]
     Active Substance: PREDNISONE
     Indication: Hidradenitis
     Route: 065
  17. TETRACYCLINE [Suspect]
     Active Substance: TETRACYCLINE
     Indication: Product used for unknown indication
     Route: 065
  18. ZINC [Suspect]
     Active Substance: ZINC
     Indication: Hidradenitis
     Route: 065
  19. AMOXICILLIN [Suspect]
     Active Substance: AMOXICILLIN
     Indication: Hidradenitis
     Route: 065
  20. DOXYCYCLINE [Suspect]
     Active Substance: DOXYCYCLINE
     Indication: Hidradenitis
     Route: 061
  21. TRIAMCINOLONE [Suspect]
     Active Substance: TRIAMCINOLONE
     Indication: Hidradenitis
     Route: 026
  22. TRIAMCINOLONE [Suspect]
     Active Substance: TRIAMCINOLONE
     Route: 026
  23. RIFAMPIN [Suspect]
     Active Substance: RIFAMPIN
     Indication: Hidradenitis
     Route: 065
  24. ERTAPENEM SODIUM [Suspect]
     Active Substance: ERTAPENEM SODIUM
     Indication: Hidradenitis
     Route: 042

REACTIONS (12)
  - Suicidal ideation [Unknown]
  - Hidradenitis [Unknown]
  - Pain [Unknown]
  - Scar [Unknown]
  - Skin lesion [Unknown]
  - Skin odour abnormal [Unknown]
  - Wound secretion [Unknown]
  - Drug intolerance [Unknown]
  - Mobility decreased [Unknown]
  - Condition aggravated [Unknown]
  - Drug ineffective [Unknown]
  - Treatment failure [Unknown]
